FAERS Safety Report 5352321-6 (Version None)
Quarter: 2007Q2

REPORT INFORMATION
  Report Type: 
  Country: None (occurrence: None)
  Receive Date: 20070607
  Receipt Date: 20070607
  Transmission Date: 20071010
  Serious: Yes (Other)
  Sender: FDA-Public Use
  Company Number: None

PATIENT
  Age: 54 Year
  Sex: Female
  Weight: 105.2345 kg

DRUGS (7)
  1. MAGNESIUM -MAGNESIUM OXIDE- 250 MG [Suspect]
     Indication: ASTHENIA
     Dosage: 250 MG DAILY PO
     Route: 048
  2. MAGNESIUM -MAGNESIUM OXIDE- 250 MG [Suspect]
     Indication: DEPRESSION
     Dosage: 250 MG DAILY PO
     Route: 048
  3. BUPROPION HCL [Suspect]
     Indication: DEPRESSION
     Dosage: 100 MG TWICE DAILY PO
     Route: 048
  4. MERIDIA [Concomitant]
  5. FLUCONAZOLE [Concomitant]
  6. LISINOPRIL [Concomitant]
  7. HYDROCHLOROTHIAZIDE [Concomitant]

REACTIONS (1)
  - AGITATION [None]
